FAERS Safety Report 6701898-4 (Version None)
Quarter: 2010Q2

REPORT INFORMATION
  Report Type: 
  Country: None (occurrence: None)
  Receive Date: 20100429
  Receipt Date: 20100419
  Transmission Date: 20101027
  Serious: Yes (Other)
  Sender: FDA-Public Use
  Company Number: JP-PFIZER INC-2010049018

PATIENT
  Age: 75 Year
  Sex: Female

DRUGS (11)
  1. LIPITOR [Suspect]
     Dosage: 10 MG, DAILY
     Route: 048
     Dates: start: 20090810
  2. NORVASC [Concomitant]
     Dosage: UNK
     Route: 048
     Dates: start: 20090810
  3. AVAPRO [Concomitant]
     Dosage: UNK
     Route: 048
     Dates: start: 20090810
  4. ASPIRIN [Concomitant]
     Dosage: UNK
     Route: 048
     Dates: start: 20090810
  5. PREDONINE [Concomitant]
     Dosage: UNK
     Route: 048
     Dates: start: 20090810
  6. PARIET [Concomitant]
     Dosage: UNK
     Route: 048
     Dates: start: 20090810
  7. PERSANTIN-L [Concomitant]
     Dosage: UNK
     Route: 048
     Dates: start: 20090810
  8. YODEL [Concomitant]
     Dosage: UNK
     Route: 048
     Dates: start: 20090810
  9. ALENDRONATE SODIUM [Concomitant]
     Dosage: UNK
     Route: 048
     Dates: start: 20090810
  10. NEORAL [Concomitant]
     Dosage: UNK
     Route: 048
     Dates: start: 20090810
  11. SELBEX [Concomitant]
     Dosage: UNK
     Dates: start: 20090810

REACTIONS (2)
  - CHROMATURIA [None]
  - MUSCLE SPASMS [None]
